FAERS Safety Report 18977376 (Version 2)
Quarter: 2021Q2

REPORT INFORMATION
  Report Type: Spontaneous
  Country: US (occurrence: US)
  Receive Date: 20210306
  Receipt Date: 20210409
  Transmission Date: 20210717
  Serious: Yes (Life-Threatening, Hospitalization)
  Sender: FDA-Public Use
  Company Number: US-LNK INTERNATIONAL, INC.-2107645

PATIENT
  Age: 17 Year
  Sex: Male

DRUGS (1)
  1. CHLORPHENIRAMINE MALEATE 4MG, DEXTROMETHORPHAN HBR 30MG FILM COATED RE [Suspect]
     Active Substance: CHLORPHENIRAMINE MALEATE\DEXTROMETHORPHAN HYDROBROMIDE
     Indication: EUPHORIC MOOD
     Route: 048
     Dates: start: 20210214

REACTIONS (1)
  - Intentional overdose [Recovering/Resolving]

NARRATIVE: CASE EVENT DATE: 20210214
